FAERS Safety Report 9689751 (Version 1)
Quarter: 2013Q4

REPORT INFORMATION
  Report Type: Spontaneous
  Country: AU (occurrence: AU)
  Receive Date: 20131115
  Receipt Date: 20131115
  Transmission Date: 20140711
  Serious: Yes (Hospitalization)
  Sender: FDA-Public Use
  Company Number: AU-JNJFOC-20131104564

PATIENT
  Sex: Male

DRUGS (1)
  1. DUROGESIC [Suspect]
     Indication: INTENTIONAL DRUG MISUSE
     Route: 048

REACTIONS (3)
  - Drug diversion [Unknown]
  - Intentional drug misuse [Unknown]
  - Incorrect route of drug administration [Unknown]
